FAERS Safety Report 15373365 (Version 1)
Quarter: 2018Q3

REPORT INFORMATION
  Report Type: Spontaneous
  Country: IT (occurrence: IT)
  Receive Date: 20180912
  Receipt Date: 20180912
  Transmission Date: 20181010
  Serious: Yes (Other)
  Sender: FDA-Public Use
  Company Number: IT-HIKMA PHARMACEUTICALS USA INC.-IT-H14001-18-07333

PATIENT
  Age: 58 Year
  Sex: Female

DRUGS (24)
  1. IRINOTECAN [Suspect]
     Active Substance: IRINOTECAN
     Indication: ADENOCARCINOMA PANCREAS
  2. ONCOPHYT 10?BIOGROUP [Concomitant]
     Indication: METASTASES TO LIVER
  3. MELATONMED?NATUR [Concomitant]
     Indication: PANCREATIC CARCINOMA METASTATIC
     Route: 065
  4. VISCUM ALBUM FERMENTATUM QU QUERCUS [Concomitant]
     Indication: METASTASES TO LIVER
  5. AHCC?INTERNATIONAL BIOLIFE [Concomitant]
     Indication: PANCREATIC CARCINOMA METASTATIC
     Route: 065
  6. VISCUM ALBUM FERMENTATUM QU QUERCUS [Concomitant]
     Indication: ADENOCARCINOMA PANCREAS
  7. FLUOROURACIL. [Suspect]
     Active Substance: FLUOROURACIL
     Indication: ADENOCARCINOMA PANCREAS
     Dosage: OVER 46 HOURS
     Route: 042
  8. POLIDAL?GHIMAS [Concomitant]
     Indication: PANCREATIC CARCINOMA METASTATIC
     Route: 065
  9. POLIDAL?GHIMAS [Concomitant]
     Indication: METASTASES TO LIVER
  10. ONCOPHYT 10?BIOGROUP [Concomitant]
     Indication: ADENOCARCINOMA PANCREAS
  11. MELATONMED?NATUR [Concomitant]
     Indication: ADENOCARCINOMA PANCREAS
  12. FLUOROURACIL. [Suspect]
     Active Substance: FLUOROURACIL
     Indication: METASTASES TO LIVER
     Route: 042
  13. CURCUMIN [Concomitant]
     Active Substance: CURCUMIN
     Indication: METASTASES TO LIVER
  14. CURCUMIN [Concomitant]
     Active Substance: CURCUMIN
     Indication: ADENOCARCINOMA PANCREAS
  15. AHCC?INTERNATIONAL BIOLIFE [Concomitant]
     Indication: ADENOCARCINOMA PANCREAS
  16. VISCUM ALBUM FERMENTATUM QU QUERCUS [Concomitant]
     Indication: PANCREATIC CARCINOMA METASTATIC
     Route: 058
  17. OXALIPLATIN. [Suspect]
     Active Substance: OXALIPLATIN
     Indication: PANCREATIC CARCINOMA METASTATIC
     Route: 042
  18. OXALIPLATIN. [Suspect]
     Active Substance: OXALIPLATIN
     Indication: ADENOCARCINOMA PANCREAS
  19. ONCOPHYT 10?BIOGROUP [Concomitant]
     Indication: PANCREATIC CARCINOMA METASTATIC
     Route: 065
  20. IRINOTECAN [Suspect]
     Active Substance: IRINOTECAN
     Indication: PANCREATIC CARCINOMA METASTATIC
     Route: 042
  21. AHCC?INTERNATIONAL BIOLIFE [Concomitant]
     Indication: METASTASES TO LIVER
  22. MELATONMED?NATUR [Concomitant]
     Indication: METASTASES TO LIVER
  23. CURCUMIN [Concomitant]
     Active Substance: CURCUMIN
     Indication: PANCREATIC CARCINOMA METASTATIC
     Route: 065
  24. POLIDAL?GHIMAS [Concomitant]
     Indication: ADENOCARCINOMA PANCREAS

REACTIONS (9)
  - Asthenia [Recovered/Resolved]
  - Fatigue [Recovered/Resolved]
  - Alopecia [Recovered/Resolved]
  - Impaired quality of life [Recovered/Resolved]
  - Off label use [Not Recovered/Not Resolved]
  - Decreased appetite [Recovered/Resolved]
  - Nausea [Recovered/Resolved]
  - Vomiting [Recovered/Resolved]
  - Pain [Recovered/Resolved]
